FAERS Safety Report 19727550 (Version 1)
Quarter: 2021Q3

REPORT INFORMATION
  Report Type: Spontaneous
  Country: GB (occurrence: GB)
  Receive Date: 20210819
  Receipt Date: 20210819
  Transmission Date: 20211014
  Serious: Yes (Other)
  Sender: FDA-Public Use
  Company Number: GB-JNJFOC-20210828060

PATIENT
  Sex: Female

DRUGS (3)
  1. TREMFYA [Suspect]
     Active Substance: GUSELKUMAB
  2. TREMFYA [Suspect]
     Active Substance: GUSELKUMAB
     Indication: ECZEMA
     Route: 058
     Dates: start: 20210726
  3. TREMFYA [Suspect]
     Active Substance: GUSELKUMAB

REACTIONS (4)
  - Pruritus [Not Recovered/Not Resolved]
  - Off label use [Unknown]
  - Product use in unapproved indication [Unknown]
  - Skin haemorrhage [Not Recovered/Not Resolved]

NARRATIVE: CASE EVENT DATE: 20210726
